FAERS Safety Report 10462894 (Version 3)
Quarter: 2014Q4

REPORT INFORMATION
  Report Type: Report from Study
  Country: CA (occurrence: CA)
  Receive Date: 20140918
  Receipt Date: 20141026
  Transmission Date: 20150528
  Serious: Yes (Life-Threatening, Hospitalization)
  Sender: FDA-Public Use
  Company Number: PHHY2014CA118799

PATIENT
  Sex: Female

DRUGS (2)
  1. GILENYA [Suspect]
     Active Substance: FINGOLIMOD HYDROCHLORIDE
     Indication: MULTIPLE SCLEROSIS
     Dosage: 0.5 MG, UNK
     Route: 048
     Dates: start: 20140610
  2. INDAPAMIDE W/PERINDOPRIL ERBUMINE [Concomitant]

REACTIONS (3)
  - Ruptured cerebral aneurysm [Unknown]
  - Cerebral haemorrhage [Unknown]
  - Intracranial aneurysm [Unknown]
